FAERS Safety Report 4764978-9 (Version None)
Quarter: 2005Q3

REPORT INFORMATION
  Report Type: 
  Country: None (occurrence: None)
  Receive Date: 20050909
  Receipt Date: 20050830
  Transmission Date: 20060218
  Serious: Yes (Death)
  Sender: FDA-Public Use
  Company Number: US-ROCHE-415887

PATIENT
  Age: 54 Year
  Sex: Male
  Weight: 126.1 kg

DRUGS (2)
  1. CAPECITABINE [Suspect]
     Dosage: THERAPY GIVEN ON DAYS 1-14 FOLLOWED BY A 7 DAY REST.
     Route: 048
     Dates: start: 20050315, end: 20050823
  2. DOCETAXEL [Suspect]
     Route: 042
     Dates: start: 20050315, end: 20050817

REACTIONS (3)
  - MYOCARDIAL INFARCTION [None]
  - SUDDEN DEATH [None]
  - VENTRICULAR ARRHYTHMIA [None]
